FAERS Safety Report 11328226 (Version 1)
Quarter: 2015Q3

REPORT INFORMATION
  Report Type: Spontaneous
  Country: BR (occurrence: US)
  Receive Date: 20150731
  Receipt Date: 20150731
  Transmission Date: 20151125
  Serious: No
  Sender: FDA-Public Use
  Company Number: BR-TAKEDA-2014TUS006940

PATIENT
  Sex: Female

DRUGS (3)
  1. PRAVACHOL [Concomitant]
     Active Substance: PRAVASTATIN SODIUM
     Dosage: 10 MG, QD
     Route: 048
  2. COLCRYS [Suspect]
     Active Substance: COLCHICINE
     Indication: PERICARDIAL DISEASE
     Dosage: 0.6 MG, QD
     Route: 048
  3. COLCRYS [Suspect]
     Active Substance: COLCHICINE
     Indication: PERICARDIAL EFFUSION

REACTIONS (1)
  - Blood urine present [Not Recovered/Not Resolved]
